FAERS Safety Report 5995798-5 (Version None)
Quarter: 2008Q4

REPORT INFORMATION
  Report Type: 
  Country: None (occurrence: None)
  Receive Date: 20081212
  Receipt Date: 20081204
  Transmission Date: 20090506
  Serious: Yes (Hospitalization)
  Sender: FDA-Public Use
  Company Number: NL-JNJFOC-20081200964

PATIENT
  Age: 59 Year
  Sex: Male
  Weight: 58 kg

DRUGS (4)
  1. REMICADE [Suspect]
     Dosage: TOTAL OF 2 DOSES
     Route: 042
  2. REMICADE [Suspect]
     Indication: COLITIS ULCERATIVE
     Route: 042
  3. PREDNISONE TAB [Concomitant]
     Indication: COLITIS
     Route: 048
  4. 5-AMINOSALICYLIC ACID [Concomitant]
     Indication: COLITIS
     Route: 054

REACTIONS (3)
  - ILEOSTOMY [None]
  - PROCTOCOLECTOMY [None]
  - PULMONARY EMBOLISM [None]
